FAERS Safety Report 5488579-2 (Version None)
Quarter: 2007Q4

REPORT INFORMATION
  Report Type: 
  Country: None (occurrence: None)
  Receive Date: 20071017
  Receipt Date: 20060929
  Transmission Date: 20080405
  Serious: No
  Sender: FDA-Public Use
  Company Number: A0620527A

PATIENT
  Age: 42 Year
  Sex: Male

DRUGS (2)
  1. CEFTIN [Suspect]
     Dosage: 500MG TWICE PER DAY
     Route: 048
     Dates: start: 20060726, end: 20060819
  2. NO CONCURRENT MEDICATION [Concomitant]

REACTIONS (1)
  - DRUG INEFFECTIVE [None]
